FAERS Safety Report 7459708-6 (Version None)
Quarter: 2011Q2

REPORT INFORMATION
  Report Type: 
  Country: None (occurrence: None)
  Receive Date: 20110505
  Receipt Date: 20110427
  Transmission Date: 20111010
  Serious: Yes (Other)
  Sender: FDA-Public Use
  Company Number: US-RB-024804-11

PATIENT
  Age: 64 Year
  Sex: Female
  Weight: 97 kg

DRUGS (9)
  1. MUCINEX [Suspect]
     Indication: PARANOIA
     Dosage: PATIENT STARTED DOSING ON ??-MAR-2011 AND FINISHED ON AN UNKNOWN DATE.
     Route: 048
  2. MUCINEX [Suspect]
     Indication: NASOPHARYNGITIS
     Dosage: PATIENT STARTED DOSING ON ??-MAR-2011 AND FINISHED ON AN UNKNOWN DATE.
     Route: 048
  3. TIAZAC [Concomitant]
  4. GEODON [Suspect]
     Indication: NASOPHARYNGITIS
     Dosage: PATIENT FINISHED DOSING ON UNKNOWN DATE.
     Route: 048
     Dates: start: 19980101
  5. NEXIUM [Concomitant]
  6. GEODON [Suspect]
     Indication: PARANOIA
     Route: 048
  7. GLUCOPHAGE [Concomitant]
  8. GEODON [Suspect]
     Route: 048
  9. VISTARIL [Concomitant]

REACTIONS (8)
  - DRUG INTERACTION [None]
  - STRESS [None]
  - FEELING ABNORMAL [None]
  - TREMOR [None]
  - NASOPHARYNGITIS [None]
  - FALL [None]
  - INCORRECT DOSE ADMINISTERED [None]
  - DYSKINESIA [None]
